FAERS Safety Report 10608418 (Version 1)
Quarter: 2014Q4

REPORT INFORMATION
  Report Type: Spontaneous
  Country: US (occurrence: US)
  Receive Date: 20141125
  Receipt Date: 20141125
  Transmission Date: 20150529
  Serious: No
  Sender: FDA-Public Use
  Company Number: US-TEVA-524616USA

PATIENT
  Sex: Female
  Weight: 104.87 kg

DRUGS (4)
  1. LORATIDINE [Concomitant]
     Active Substance: LORATADINE
     Indication: HYPERTENSION
  2. HYDROCHLOROTHIAZIDE. [Concomitant]
     Active Substance: HYDROCHLOROTHIAZIDE
     Indication: HYPERTENSION
  3. SENNA [Concomitant]
     Active Substance: SENNA LEAF\SENNOSIDES\SENNOSIDES A AND B
     Indication: CONSTIPATION
  4. PARAGARD T380A [Suspect]
     Active Substance: COPPER
     Indication: CONTRACEPTION
     Route: 015

REACTIONS (2)
  - Device breakage [Not Recovered/Not Resolved]
  - Metrorrhagia [Not Recovered/Not Resolved]
